FAERS Safety Report 15230118 (Version 1)
Quarter: 2018Q3

REPORT INFORMATION
  Report Type: Spontaneous
  Country: US (occurrence: US)
  Receive Date: 20180802
  Receipt Date: 20180802
  Transmission Date: 20181010
  Serious: Yes (Other)
  Sender: FDA-Public Use
  Company Number: US-ACCORD-065269

PATIENT
  Age: 50 Year
  Sex: Female
  Weight: 58.06 kg

DRUGS (9)
  1. HERCEPTIN [Concomitant]
     Active Substance: TRASTUZUMAB
     Dosage: OVER 91 MINUTES MIX IN 250 ML NS
     Route: 042
  2. DOCETAXEL ACCORD [Suspect]
     Active Substance: DOCETAXEL
     Indication: BREAST CANCER
     Dosage: NUMBER OF CYCLES: 06
     Route: 042
     Dates: start: 20140414, end: 20140718
  3. PARAPLATIN [Suspect]
     Active Substance: CARBOPLATIN
     Indication: BREAST CANCER
     Dosage: NUMBER OF CYCLES:  06
     Route: 042
     Dates: start: 20140414, end: 20140718
  4. NORCO [Concomitant]
     Active Substance: ACETAMINOPHEN\HYDROCODONE BITARTRATE
     Indication: PAIN
     Dosage: STRENGTH: 5 MG?325 MG?AS NEEDED
     Route: 048
     Dates: start: 20140401
  5. DEXAMETHASONE. [Concomitant]
     Active Substance: DEXAMETHASONE
     Dosage: OVER 15 MINUTES MIX IN 100 ML NS
     Route: 042
  6. CITALOPRAM [Concomitant]
     Active Substance: CITALOPRAM HYDROBROMIDE
     Dosage: STRENGTH: 200 MG
     Dates: start: 200708
  7. PROCHLORPERAZINE. [Concomitant]
     Active Substance: PROCHLORPERAZINE
     Dosage: STRENGTH: 10 MG
     Route: 048
     Dates: start: 20140401
  8. PALONOSETRON. [Concomitant]
     Active Substance: PALONOSETRON HYDROCHLORIDE
     Route: 042
  9. LORAZEPAM. [Concomitant]
     Active Substance: LORAZEPAM
     Indication: NAUSEA
     Dosage: STRENGTH: 0.5 MG?AS NEEDED
     Route: 048

REACTIONS (1)
  - Alopecia [Not Recovered/Not Resolved]

NARRATIVE: CASE EVENT DATE: 201404
